FAERS Safety Report 4848808-2 (Version None)
Quarter: 2005Q4

REPORT INFORMATION
  Report Type: 
  Country: None (occurrence: None)
  Receive Date: 20051115
  Receipt Date: 20050818
  Transmission Date: 20060501
  Serious: No
  Sender: FDA-Public Use
  Company Number: S05-USA-04150-01

PATIENT
  Age: 85 Year
  Sex: Male

DRUGS (4)
  1. NAMENDA [Suspect]
     Dosage: 5 MG QD PO
     Route: 048
     Dates: start: 20050101, end: 20050101
  2. NAMENDA [Suspect]
     Dosage: 10 MG QD PO
     Route: 048
     Dates: start: 20050101
  3. ARICEPT [Concomitant]
  4. DIABETES MEDICATION (NOS) [Concomitant]

REACTIONS (2)
  - MUSCLE SPASMS [None]
  - SCLERAL DISCOLOURATION [None]
